FAERS Safety Report 18682907 (Version 1)
Quarter: 2020Q4

REPORT INFORMATION
  Report Type: Spontaneous
  Country: IT (occurrence: IT)
  Receive Date: 20201230
  Receipt Date: 20201230
  Transmission Date: 20210114
  Serious: Yes (Other)
  Sender: FDA-Public Use
  Company Number: IT-MYLANLABS-2020M1104676

PATIENT
  Age: 78 Year
  Sex: Female

DRUGS (4)
  1. TOBRAMYCIN. [Suspect]
     Active Substance: TOBRAMYCIN
     Indication: KERATITIS BACTERIAL
     Dosage: UNK
     Route: 061
  2. ATROPINE. [Concomitant]
     Active Substance: ATROPINE
     Indication: EYE PAIN
     Dosage: DROPS
     Route: 061
  3. LEVOFLOXACIN. [Suspect]
     Active Substance: LEVOFLOXACIN
     Indication: KERATITIS BACTERIAL
     Dosage: UNK
     Route: 061
  4. CEFTAZIDIME. [Suspect]
     Active Substance: CEFTAZIDIME
     Indication: KERATITIS BACTERIAL
     Dosage: UNK
     Route: 042

REACTIONS (1)
  - Drug ineffective [Unknown]
